FAERS Safety Report 6619137-1 (Version None)
Quarter: 2010Q1

REPORT INFORMATION
  Report Type: 
  Country: None (occurrence: None)
  Receive Date: 20100305
  Receipt Date: 20100305
  Transmission Date: 20100710
  Serious: Yes (Hospitalization)
  Sender: FDA-Public Use
  Company Number: None

PATIENT
  Age: 72 Year
  Sex: Male

DRUGS (2)
  1. LEVOFLOXACIN [Suspect]
     Indication: SINUSITIS
     Dosage: 500 MG EVERY DAY PO
     Route: 048
     Dates: start: 20100221, end: 20100222
  2. PIPERACILLIN AND TAZOBACTAM [Suspect]
     Dosage: IV
     Route: 042
     Dates: start: 20100217, end: 20100220

REACTIONS (3)
  - CLOSTRIDIAL INFECTION [None]
  - MEGACOLON [None]
  - WHITE BLOOD CELL COUNT INCREASED [None]
